FAERS Safety Report 5021632-6 (Version None)
Quarter: 2006Q2

REPORT INFORMATION
  Report Type: 
  Country: None (occurrence: None)
  Receive Date: 20060601
  Receipt Date: 20060312
  Transmission Date: 20061013
  Serious: No
  Sender: FDA-Public Use
  Company Number: 2006PV010061

PATIENT
  Age: 43 Year
  Sex: Female
  Weight: 82.5547 kg

DRUGS (8)
  1. BYETTA [Suspect]
     Indication: INSULIN RESISTANT DIABETES
     Dosage: 5 MCG BID SC
     Route: 058
     Dates: start: 20060215
  2. SINGULAIR [Concomitant]
  3. CLARINEX [Concomitant]
  4. WELLBUTRIN [Concomitant]
  5. NEXIUM [Concomitant]
  6. ADVAIR DISKUS 100/50 [Concomitant]
  7. ALBUTEROL [Concomitant]
  8. ESTROGENS SOL/INJ [Concomitant]

REACTIONS (2)
  - INJECTION SITE RASH [None]
  - NAUSEA [None]
